FAERS Safety Report 9225468 (Version 2)
Quarter: 2013Q2

REPORT INFORMATION
  Report Type: Report from Study
  Country: US (occurrence: US)
  Receive Date: 20130411
  Receipt Date: 20130508
  Transmission Date: 20140414
  Serious: Yes (Other)
  Sender: FDA-Public Use
  Company Number: US-ROCHE-1209882

PATIENT
  Sex: 0

DRUGS (6)
  1. ALTEPLASE [Suspect]
     Indication: ACUTE MYOCARDIAL INFARCTION
     Dosage: BOLUS INJECTION OF 15 MG
     Route: 065
  2. ALTEPLASE [Suspect]
     Dosage: 0.50 MG/KG (UP TO OF 35 AND NOT TO EXCEED TOTAL DOSE OF 50 MG
     Route: 065
  3. ASPIRIN [Suspect]
     Indication: ACUTE MYOCARDIAL INFARCTION
     Route: 048
  4. CANGRELOR [Suspect]
     Indication: ACUTE MYOCARDIAL INFARCTION
     Dosage: 140 MCG/MIN
     Route: 065
  5. UNFRACTIONATED HEPARIN [Suspect]
     Indication: ACUTE MYOCARDIAL INFARCTION
     Dosage: 60 U/KG UP TO A MAXIMUM OF 4000 U BOLUS
     Route: 065
  6. UNFRACTIONATED HEPARIN [Suspect]
     Dosage: 12 U/KG PER HOUR UP TO A MAXIMUM OF 1000 U PER HOUR INFUSION; ADJUSTED TO ACHIEVE AN ACTIVATED
     Route: 065

REACTIONS (1)
  - Coronary revascularisation [Unknown]
